FAERS Safety Report 15801924 (Version 4)
Quarter: 2020Q1

REPORT INFORMATION
  Report Type: Report from Study
  Country: US (occurrence: US)
  Receive Date: 20190109
  Receipt Date: 20200227
  Transmission Date: 20200409
  Serious: Yes (Life-Threatening, Hospitalization, Other)
  Sender: FDA-Public Use
  Company Number: US-SA-2016SA068816

PATIENT
  Age: 36 Year
  Sex: Male

DRUGS (2)
  1. ALEMTUZUMAB [Suspect]
     Active Substance: ALEMTUZUMAB
     Indication: MULTIPLE SCLEROSIS
     Dosage: 12 MG,QD
     Route: 041
     Dates: start: 20160322, end: 20160325
  2. ALEMTUZUMAB [Suspect]
     Active Substance: ALEMTUZUMAB
     Dosage: 12 MG,QD
     Route: 041
     Dates: start: 20160328, end: 20160328

REACTIONS (34)
  - Thrombosis [Recovered/Resolved]
  - Dysarthria [Unknown]
  - Loss of consciousness [Unknown]
  - Haemoglobin abnormal [Recovered/Resolved]
  - Cognitive disorder [Not Recovered/Not Resolved]
  - Amnesia [Not Recovered/Not Resolved]
  - Laboratory test abnormal [Unknown]
  - Unevaluable event [Unknown]
  - Hypotension [Unknown]
  - Speech disorder [Not Recovered/Not Resolved]
  - Blindness [Not Recovered/Not Resolved]
  - Hallucination [Not Recovered/Not Resolved]
  - Rash [Not Recovered/Not Resolved]
  - Paranoia [Not Recovered/Not Resolved]
  - Condition aggravated [Not Recovered/Not Resolved]
  - Disturbance in attention [Unknown]
  - Asthenia [Unknown]
  - Hypersomnia [Not Recovered/Not Resolved]
  - Burning sensation [Unknown]
  - Confusional state [Not Recovered/Not Resolved]
  - Hypertonic bladder [Not Recovered/Not Resolved]
  - Visual impairment [Not Recovered/Not Resolved]
  - Syncope [Unknown]
  - Pigmentation disorder [Not Recovered/Not Resolved]
  - Limb discomfort [Unknown]
  - Fatigue [Not Recovered/Not Resolved]
  - Dyspnoea [Recovered/Resolved]
  - Tachycardia [Unknown]
  - Pain in extremity [Unknown]
  - Gait disturbance [Unknown]
  - Multiple sclerosis relapse [Unknown]
  - Rhinorrhoea [Not Recovered/Not Resolved]
  - Chills [Unknown]
  - Fall [Unknown]

NARRATIVE: CASE EVENT DATE: 2016
